FAERS Safety Report 8919927 (Version 1)
Quarter: 2012Q4

REPORT INFORMATION
  Report Type: 
  Country: US (occurrence: US)
  Receive Date: 20121121
  Receipt Date: 20121121
  Transmission Date: 20130627
  Serious: No
  Sender: FDA-Public Use
  Company Number: US-BAYER-2012-117526

PATIENT
  Age: 61 Year
  Weight: 68.03 kg

DRUGS (3)
  1. ALEVE CAPLET/TABLET,MIDOL EXTENDED RELIEF CAPLET [Suspect]
  2. ADVIL [Concomitant]
  3. ANALGESICS [Concomitant]

REACTIONS (1)
  - Gastric disorder [None]
